FAERS Safety Report 5841040-5 (Version None)
Quarter: 2008Q3

REPORT INFORMATION
  Report Type: 
  Country: None (occurrence: None)
  Receive Date: 20080811
  Receipt Date: 20080801
  Transmission Date: 20090109
  Serious: Yes (Hospitalization)
  Sender: FDA-Public Use
  Company Number: AU-ABBOTT-08P-008-0468891-00

PATIENT
  Sex: Male

DRUGS (9)
  1. HYTRIN [Suspect]
     Indication: DRUG USE FOR UNKNOWN INDICATION
  2. FERRO-GRADUMET [Suspect]
     Indication: DRUG USE FOR UNKNOWN INDICATION
  3. CAPECITABINE [Suspect]
     Indication: DRUG USE FOR UNKNOWN INDICATION
  4. CAPTOPRIL [Concomitant]
     Indication: DRUG USE FOR UNKNOWN INDICATION
  5. CODALGIN [Concomitant]
     Indication: DRUG USE FOR UNKNOWN INDICATION
  6. IMIPRAMINE [Concomitant]
     Indication: DRUG USE FOR UNKNOWN INDICATION
  7. PREDNISONE TAB [Concomitant]
     Indication: DRUG USE FOR UNKNOWN INDICATION
  8. OMEPRAZOLE [Concomitant]
     Indication: DRUG USE FOR UNKNOWN INDICATION
  9. KETOPROFEN [Concomitant]
     Indication: DRUG USE FOR UNKNOWN INDICATION

REACTIONS (2)
  - DIARRHOEA [None]
  - NEUTROPENIA [None]
